FAERS Safety Report 10003865 (Version 1)
Quarter: 2014Q1

REPORT INFORMATION
  Report Type: Spontaneous
  Country: US (occurrence: US)
  Receive Date: 20140312
  Receipt Date: 20140312
  Transmission Date: 20141002
  Serious: Yes (Hospitalization)
  Sender: FDA-Public Use
  Company Number: US-BAYER-2014-035819

PATIENT
  Age: 18 Year
  Sex: Female
  Weight: 73 kg

DRUGS (10)
  1. YAZ [Suspect]
  2. GIANVI [Suspect]
  3. TUSSIONEX [Concomitant]
  4. IBUPROFEN [Concomitant]
     Dosage: 600 MG, UNK
  5. TYLENOL [PARACETAMOL] [Concomitant]
  6. TORADOL [Concomitant]
  7. MORPHINE [Concomitant]
  8. DIAMOX [Concomitant]
  9. FLEXERIL [Concomitant]
  10. FIORICET [Concomitant]

REACTIONS (2)
  - Cerebral venous thrombosis [Recovered/Resolved]
  - Jugular vein thrombosis [Recovered/Resolved]
